FAERS Safety Report 4864481-1 (Version None)
Quarter: 2005Q4

REPORT INFORMATION
  Report Type: 
  Country: None (occurrence: None)
  Receive Date: 20051222
  Receipt Date: 20050503
  Transmission Date: 20060501
  Serious: Yes (Hospitalization)
  Sender: FDA-Public Use
  Company Number: AU-BRISTOL-MYERS SQUIBB COMPANY-12953758

PATIENT
  Sex: Male

DRUGS (1)
  1. MODECATE [Suspect]

REACTIONS (1)
  - HAEMOGLOBIN DECREASED [None]
